FAERS Safety Report 7652829-4 (Version None)
Quarter: 2011Q3

REPORT INFORMATION
  Report Type: 
  Country: None (occurrence: None)
  Receive Date: 20110803
  Receipt Date: 20110723
  Transmission Date: 20111222
  Serious: Yes (Hospitalization)
  Sender: FDA-Public Use
  Company Number: US-JNJFOC-20110712011

PATIENT
  Sex: Female
  Weight: 77.11 kg

DRUGS (6)
  1. ANTIHYPERTENSIVE [Concomitant]
  2. WATER PILL NOS [Concomitant]
  3. ASPIRIN [Suspect]
     Indication: PRODUCT USED FOR UNKNOWN INDICATION
  4. EXTRA STRENGTH TYLENOL [Suspect]
     Dosage: 1 TO 2 DOSES A DAY
     Dates: start: 19910101
  5. EXTRA STRENGTH TYLENOL [Suspect]
     Indication: PAIN
     Dates: start: 20110723
  6. PLAVIX [Suspect]
     Indication: PRODUCT USED FOR UNKNOWN INDICATION

REACTIONS (2)
  - PRODUCT QUALITY ISSUE [None]
  - EPISTAXIS [None]
